FAERS Safety Report 5495078-0 (Version None)
Quarter: 2007Q4

REPORT INFORMATION
  Report Type: 
  Country: None (occurrence: None)
  Receive Date: 20071015
  Receipt Date: 20070213
  Transmission Date: 20080405
  Serious: Yes (Other)
  Sender: FDA-Public Use
  Company Number: S07-USA-00680-01

PATIENT
  Age: 62 Year
  Sex: Male

DRUGS (3)
  1. LEXAPRO [Suspect]
     Indication: ANXIETY
     Dosage: 10 MG QD PO
     Route: 048
     Dates: start: 20060901
  2. ATENOLOL [Concomitant]
  3. HYDROCHLOROTHIAZIDE [Concomitant]

REACTIONS (1)
  - BLOOD PRESSURE INCREASED [None]
